FAERS Safety Report 10874790 (Version 2)
Quarter: 2015Q2

REPORT INFORMATION
  Report Type: Spontaneous
  Country: LB (occurrence: LB)
  Receive Date: 20150227
  Receipt Date: 20150427
  Transmission Date: 20150821
  Serious: Yes (Other)
  Sender: FDA-Public Use
  Company Number: LB-BAYER-2015-027939

PATIENT
  Age: 62 Year
  Sex: Female

DRUGS (1)
  1. STIVARGA [Suspect]
     Active Substance: REGORAFENIB
     Indication: COLON CANCER METASTATIC
     Dosage: 4 CYCLES (3 WEEKS ON 1 WEEK OFF)
     Route: 048

REACTIONS (3)
  - Carcinoembryonic antigen increased [None]
  - Metastases to abdominal cavity [None]
  - Pre-existing condition improved [None]
